FAERS Safety Report 12844011 (Version 2)
Quarter: 2016Q4

REPORT INFORMATION
  Report Type: Report from Study
  Country: KR (occurrence: KR)
  Receive Date: 20161013
  Receipt Date: 20161115
  Transmission Date: 20170207
  Serious: Yes (Hospitalization)
  Sender: FDA-Public Use
  Company Number: KR-B.I. PHARMACEUTICALS,INC./RIDGEFIELD-2016-BI-065755

PATIENT
  Age: 69 Year
  Sex: Female
  Weight: 48.5 kg

DRUGS (1)
  1. BIBF 1120 [Suspect]
     Active Substance: NINTEDANIB
     Indication: IDIOPATHIC PULMONARY FIBROSIS
     Route: 048
     Dates: start: 20151111

REACTIONS (2)
  - Haemoptysis [Recovered/Resolved]
  - Diarrhoea [Recovered/Resolved]

NARRATIVE: CASE EVENT DATE: 20160801
